FAERS Safety Report 7294799-7 (Version None)
Quarter: 2011Q1

REPORT INFORMATION
  Report Type: 
  Country: None (occurrence: None)
  Receive Date: 20110216
  Receipt Date: 20101228
  Transmission Date: 20110831
  Serious: Yes (Hospitalization, Disabling, Other)
  Sender: FDA-Public Use
  Company Number: US-BAYER-201024896NA

PATIENT
  Sex: Female
  Weight: 67.574 kg

DRUGS (12)
  1. KLONOPIN [Concomitant]
     Indication: DEPRESSION
  2. SYMBICORT [Concomitant]
     Indication: ASTHMA
     Dosage: UNK
     Dates: start: 20040101
  3. SUDAFED 12 HOUR [Concomitant]
     Dosage: UNK UNK, PRN
  4. CLARITIN [Concomitant]
     Dosage: 10 MG, QD
  5. YASMIN [Suspect]
     Indication: PREMENSTRUAL SYNDROME
     Route: 048
     Dates: start: 20041201
  6. ADVAIR [Concomitant]
     Indication: ASTHMA
     Dosage: UNK UNK, BID
     Dates: start: 20040101
  7. SINGULAIR [Concomitant]
     Dosage: UNK UNK, QD
  8. LEXAPRO [Concomitant]
     Indication: NERVOUSNESS
  9. ALBUTEROL [Concomitant]
     Dosage: UNK UNK, PRN
  10. ZOLOFT [Concomitant]
     Indication: ANXIETY
  11. HEMOCYTE PLUS [Concomitant]
     Indication: IRON DEFICIENCY
  12. ADVIL [Concomitant]
     Indication: HEADACHE

REACTIONS (12)
  - NERVOUS SYSTEM DISORDER [None]
  - GENERAL PHYSICAL CONDITION ABNORMAL [None]
  - CHOLECYSTECTOMY [None]
  - DECREASED APPETITE [None]
  - PELVIC PAIN [None]
  - VOMITING [None]
  - NAUSEA [None]
  - ABDOMINAL DISTENSION [None]
  - ABDOMINAL PAIN [None]
  - PORTAL VEIN THROMBOSIS [None]
  - MENTAL DISORDER [None]
  - PAIN [None]
